FAERS Safety Report 5215848-3 (Version None)
Quarter: 2007Q1

REPORT INFORMATION
  Report Type: 
  Country: None (occurrence: None)
  Receive Date: 20070123
  Receipt Date: 20070122
  Transmission Date: 20070707
  Serious: Yes (Other)
  Sender: FDA-Public Use
  Company Number: 2007-000673

PATIENT
  Age: 73 Year
  Sex: Male
  Weight: 77.8 kg

DRUGS (11)
  1. FLOLAN [Suspect]
     Route: 042
     Dates: start: 20060828
  2. FOLIC ACID [Concomitant]
     Dosage: .4MG PER DAY
     Route: 048
  3. FUROSEMIDE [Concomitant]
     Dosage: 40MG PER DAY
     Route: 048
  4. TOPROL-XL [Concomitant]
     Dosage: 25MG PER DAY
     Route: 048
  5. OCUTAB [Concomitant]
     Dosage: 1TAB PER DAY
     Route: 048
  6. ZOCOR [Concomitant]
     Dosage: 20MG PER DAY
     Route: 048
  7. COUMADIN [Concomitant]
     Dosage: 5MG PER DAY
     Route: 048
  8. COUMADIN [Concomitant]
     Dosage: 7.5MG PER DAY
     Route: 048
  9. METROGEL [Concomitant]
     Route: 061
  10. SPIRIVA [Concomitant]
     Dosage: 18MCG PER DAY
     Route: 055
  11. ASPIRIN [Concomitant]
     Dosage: 81MG PER DAY
     Route: 048

REACTIONS (1)
  - PULMONARY HYPERTENSION [None]
